FAERS Safety Report 11054099 (Version 1)
Quarter: 2015Q2

REPORT INFORMATION
  Report Type: Spontaneous
  Country: US (occurrence: US)
  Receive Date: 20150422
  Receipt Date: 20150422
  Transmission Date: 20150821
  Serious: No
  Sender: FDA-Public Use
  Company Number: US-TEVA-536063USA

PATIENT
  Sex: Female

DRUGS (1)
  1. LOSARTAN [Suspect]
     Active Substance: LOSARTAN
     Indication: HYPERTENSION
     Route: 065

REACTIONS (6)
  - Memory impairment [Unknown]
  - Musculoskeletal pain [Unknown]
  - Feeling abnormal [Unknown]
  - Pain [Unknown]
  - Back pain [Unknown]
  - Musculoskeletal stiffness [Unknown]
